FAERS Safety Report 13590094 (Version 2)
Quarter: 2018Q2

REPORT INFORMATION
  Report Type: Spontaneous
  Country: ZA (occurrence: ZA)
  Receive Date: 20170530
  Receipt Date: 20180426
  Transmission Date: 20180711
  Serious: Yes (Other)
  Sender: FDA-Public Use
  Company Number: ZA-BAUSCH-BL-2017-017364

PATIENT
  Age: 70 Year
  Sex: Female

DRUGS (2)
  1. TIMOLOL MALEATE. [Suspect]
     Active Substance: TIMOLOL MALEATE
     Indication: GLAUCOMA
     Route: 047
     Dates: start: 2013
  2. ALPHAGAN P [Suspect]
     Active Substance: BRIMONIDINE TARTRATE
     Indication: GLAUCOMA
     Route: 047
     Dates: start: 2013

REACTIONS (2)
  - Eye irritation [Unknown]
  - Ocular hyperaemia [Unknown]

NARRATIVE: CASE EVENT DATE: 2013
